FAERS Safety Report 18029764 (Version 3)
Quarter: 2021Q4

REPORT INFORMATION
  Report Type: Spontaneous
  Country: US (occurrence: US)
  Receive Date: 20200715
  Receipt Date: 20211202
  Transmission Date: 20220303
  Serious: Yes (Other)
  Sender: FDA-Public Use
  Company Number: US-PFIZER INC-2016558354

PATIENT
  Age: 79 Year
  Sex: Female
  Weight: 99.773 kg

DRUGS (11)
  1. LYRICA [Suspect]
     Active Substance: PREGABALIN
     Indication: Limb discomfort
     Dosage: 200 MG, 2X/DAY (ONE IN THE MORNING AND ONE IN THE EVENING BEFORE BED)
     Route: 048
  2. VITAMIN B12 [Concomitant]
     Active Substance: CYANOCOBALAMIN
     Dosage: 50 UG, DAILY
     Route: 048
  3. EPIPEN [Concomitant]
     Active Substance: EPINEPHRINE
     Indication: Dyspnoea
     Dosage: 0.3 ML, AS NEEDED ((0.3 MG/0.3 ML, INJECT 0.3 MG TOTAL INTO THE MUSCLE ONCE AS NEEDED)
     Route: 030
  4. EPIPEN [Concomitant]
     Active Substance: EPINEPHRINE
     Indication: Wheezing
  5. EPIPEN [Concomitant]
     Active Substance: EPINEPHRINE
     Indication: Dizziness
  6. EPIPEN [Concomitant]
     Active Substance: EPINEPHRINE
     Indication: Loss of consciousness
  7. EPIPEN [Concomitant]
     Active Substance: EPINEPHRINE
     Indication: Vomiting
  8. EPIPEN [Concomitant]
     Active Substance: EPINEPHRINE
     Indication: Anaphylactic reaction
  9. PEPCID [Concomitant]
     Active Substance: FAMOTIDINE
     Dosage: 20 MG, 2X/DAY
     Route: 048
  10. ELAVIL [Concomitant]
     Active Substance: AMITRIPTYLINE HYDROCHLORIDE
     Dosage: 10 MG
  11. METFORMIN [Concomitant]
     Active Substance: METFORMIN HYDROCHLORIDE

REACTIONS (8)
  - Cataract [Unknown]
  - Deafness [Unknown]
  - Neuropathy peripheral [Unknown]
  - Feeling abnormal [Unknown]
  - Hypoacusis [Unknown]
  - Weight increased [Unknown]
  - Off label use [Unknown]
  - Drug effective for unapproved indication [Unknown]
